FAERS Safety Report 9304460 (Version 5)
Quarter: 2014Q2

REPORT INFORMATION
  Report Type: Spontaneous
  Country: US (occurrence: US)
  Receive Date: 20130523
  Receipt Date: 20140603
  Transmission Date: 20141212
  Serious: No
  Sender: FDA-Public Use
  Company Number: US-009507513-1305USA012219

PATIENT
  Sex: Male
  Weight: 70.23 kg

DRUGS (2)
  1. PROPECIA [Suspect]
     Indication: ALOPECIA
     Dosage: 1 MG, UNK
     Route: 048
     Dates: start: 20071001
  2. PROSCAR [Suspect]
     Dosage: 5 MG, UNK
     Route: 048

REACTIONS (22)
  - Painful ejaculation [Unknown]
  - Penile pain [Unknown]
  - Soft tissue injury [Unknown]
  - Hormone level abnormal [Unknown]
  - Brain injury [Unknown]
  - Anxiety [Not Recovered/Not Resolved]
  - Pain in extremity [Unknown]
  - Exostosis [Unknown]
  - Prostatitis [Unknown]
  - Urinary tract infection [Unknown]
  - Oropharyngeal pain [Unknown]
  - Tendon operation [Unknown]
  - Hypercholesterolaemia [Unknown]
  - Emphysema [Unknown]
  - Bronchitis chronic [Not Recovered/Not Resolved]
  - Urine flow decreased [Unknown]
  - Hypertension [Unknown]
  - Sexual dysfunction [Not Recovered/Not Resolved]
  - Erectile dysfunction [Not Recovered/Not Resolved]
  - Testicular pain [Unknown]
  - Libido decreased [Unknown]
  - Depression [Not Recovered/Not Resolved]
